FAERS Safety Report 16269532 (Version 1)
Quarter: 2019Q2

REPORT INFORMATION
  Report Type: Spontaneous
  Country: US (occurrence: PR)
  Receive Date: 20190503
  Receipt Date: 20190503
  Transmission Date: 20190711
  Serious: No
  Sender: FDA-Public Use
  Company Number: US-PFIZER INC-2019185550

PATIENT
  Age: 60 Year
  Sex: Female
  Weight: 81.19 kg

DRUGS (3)
  1. LYRICA [Suspect]
     Active Substance: PREGABALIN
     Dosage: 200 MG, 1X/DAY (IN THE MORNING)
     Route: 048
  2. LYRICA [Suspect]
     Active Substance: PREGABALIN
     Indication: FIBROMYALGIA
     Dosage: 75 MG, UNK
     Route: 048
  3. LYRICA [Suspect]
     Active Substance: PREGABALIN
     Dosage: 625 MG, DAILY (TAKING TWO 200MG AND ONE 225MG OF LYRICA A DAY)
     Route: 048

REACTIONS (3)
  - Panic reaction [Unknown]
  - Weight increased [Unknown]
  - Anxiety [Unknown]
